FAERS Safety Report 11222130 (Version 1)
Quarter: 2015Q2

REPORT INFORMATION
  Report Type: Report from Study
  Country: US (occurrence: US)
  Receive Date: 20150626
  Receipt Date: 20150626
  Transmission Date: 20150821
  Serious: Yes (Hospitalization)
  Sender: FDA-Public Use
  Company Number: PHEH2015US011552

PATIENT
  Sex: Female
  Weight: 62.59 kg

DRUGS (4)
  1. XANAX [Concomitant]
     Active Substance: ALPRAZOLAM
     Indication: PRODUCT USED FOR UNKNOWN INDICATION
     Route: 065
  2. COPAXONE [Concomitant]
     Active Substance: GLATIRAMER ACETATE
     Indication: MULTIPLE SCLEROSIS
     Dosage: UNK, QD
     Route: 065
  3. GILENYA [Suspect]
     Active Substance: FINGOLIMOD HYDROCHLORIDE
     Indication: MULTIPLE SCLEROSIS
     Dosage: 0.5 MG, QD
     Route: 048
  4. ZOLOFT [Concomitant]
     Active Substance: SERTRALINE HYDROCHLORIDE
     Indication: PRODUCT USED FOR UNKNOWN INDICATION
     Route: 065

REACTIONS (15)
  - Chest discomfort [Unknown]
  - Tricuspid valve incompetence [Unknown]
  - Occipital neuralgia [Recovered/Resolved]
  - Muscle tightness [Unknown]
  - Ataxia [Unknown]
  - Visual impairment [Unknown]
  - Disturbance in attention [Unknown]
  - Mitral valve incompetence [Unknown]
  - Hypoaesthesia [Unknown]
  - Muscular weakness [Unknown]
  - Hearing impaired [Unknown]
  - Panic attack [Unknown]
  - CSF oligoclonal band present [Unknown]
  - Abdominal distension [Unknown]
  - Bladder dysfunction [Unknown]
